FAERS Safety Report 10606692 (Version 3)
Quarter: 2019Q1

REPORT INFORMATION
  Report Type: Report from Study
  Country: US (occurrence: US)
  Receive Date: 20141125
  Receipt Date: 20190218
  Transmission Date: 20190417
  Serious: Yes (Hospitalization)
  Sender: FDA-Public Use
  Company Number: US-SA-2014SA160640

PATIENT
  Age: 45 Year
  Sex: Female

DRUGS (1)
  1. AGALSIDASE BETA [Suspect]
     Active Substance: AGALSIDASE BETA
     Indication: FABRY^S DISEASE
     Dosage: 75.00, Q2
     Route: 041
     Dates: start: 20140828

REACTIONS (5)
  - Gastroenteritis viral [Recovering/Resolving]
  - Abdominal pain upper [Unknown]
  - Ovarian cyst [Unknown]
  - Menorrhagia [Unknown]
  - Nasopharyngitis [Recovering/Resolving]

NARRATIVE: CASE EVENT DATE: 20190204
